FAERS Safety Report 16488055 (Version 1)
Quarter: 2019Q2

REPORT INFORMATION
  Report Type: Spontaneous
  Country: US (occurrence: US)
  Receive Date: 20190627
  Receipt Date: 20190627
  Transmission Date: 20190711
  Serious: No
  Sender: FDA-Public Use
  Company Number: US-009507513-1906USA007344

PATIENT
  Age: 77 Year
  Sex: Female

DRUGS (2)
  1. DULERA [Suspect]
     Active Substance: FORMOTEROL FUMARATE DIHYDRATE\MOMETASONE FUROATE
     Indication: CHRONIC OBSTRUCTIVE PULMONARY DISEASE
     Dosage: 1 PUFF IN AM 1 PUFF IN PM
     Route: 055
  2. DULERA [Suspect]
     Active Substance: FORMOTEROL FUMARATE DIHYDRATE\MOMETASONE FUROATE
     Dosage: 1 PUFF IN AM 1 PUFF IN PM
     Route: 055

REACTIONS (4)
  - Poor quality device used [Unknown]
  - No adverse event [Unknown]
  - Product quality issue [Recovering/Resolving]
  - Drug dose omission by device [Unknown]

NARRATIVE: CASE EVENT DATE: 20190618
